FAERS Safety Report 15773110 (Version 4)
Quarter: 2019Q1

REPORT INFORMATION
  Report Type: Spontaneous
  Country: US (occurrence: US)
  Receive Date: 20181228
  Receipt Date: 20190227
  Transmission Date: 20190417
  Serious: No
  Sender: FDA-Public Use
  Company Number: US-SA-2018SA396065

PATIENT
  Age: 79 Year
  Sex: Female
  Weight: 62.14 kg

DRUGS (13)
  1. LISINOPRIL. [Concomitant]
     Active Substance: LISINOPRIL
  2. PRALUENT [Suspect]
     Active Substance: ALIROCUMAB
     Indication: TYPE IIA HYPERLIPIDAEMIA
     Dosage: 75 MG, QOW
     Route: 058
     Dates: start: 201812
  3. COENZYME Q10 [Concomitant]
     Active Substance: UBIDECARENONE
  4. OMEGA-3 FATTY ACIDS [Concomitant]
     Active Substance: OMEGA-3 FATTY ACIDS
  5. VITAMIN D3 [Concomitant]
     Active Substance: CHOLECALCIFEROL
  6. PREMARIN [Concomitant]
     Active Substance: ESTROGENS, CONJUGATED
  7. CITALOPRAM [Concomitant]
     Active Substance: CITALOPRAM HYDROBROMIDE
  8. CELEBREX [Concomitant]
     Active Substance: CELECOXIB
  9. TRAMADOL. [Concomitant]
     Active Substance: TRAMADOL
  10. PRALUENT [Suspect]
     Active Substance: ALIROCUMAB
     Indication: HYPERLIPIDAEMIA
  11. LORATADINE. [Concomitant]
     Active Substance: LORATADINE
  12. MAGNESIUM OXIDE. [Concomitant]
     Active Substance: MAGNESIUM OXIDE
  13. CARVEDILOL. [Concomitant]
     Active Substance: CARVEDILOL

REACTIONS (4)
  - Feeling abnormal [Unknown]
  - Malaise [Unknown]
  - Muscular weakness [Unknown]
  - Agitation [Unknown]

NARRATIVE: CASE EVENT DATE: 20181214
